FAERS Safety Report 9166942 (Version 1)
Quarter: 2013Q1

REPORT INFORMATION
  Report Type: Spontaneous
  Country: CA (occurrence: CA)
  Receive Date: 20130318
  Receipt Date: 20130318
  Transmission Date: 20140127
  Serious: Yes (Other)
  Sender: FDA-Public Use
  Company Number: CA-AMGEN-CANSP2011054811

PATIENT
  Age: 48 Year
  Sex: Female

DRUGS (9)
  1. ENBREL [Suspect]
     Indication: RHEUMATOID ARTHRITIS
     Dosage: 50 MG, QWK
     Route: 058
     Dates: start: 20110601, end: 201208
  2. NAPROXEN [Concomitant]
     Dosage: 500 MG, QOD
  3. CRESTOR [Concomitant]
     Dosage: 10 MG, QD
  4. ELTROXIN [Concomitant]
     Dosage: 0.2 MG, QD
  5. OMEPRAZOLE [Concomitant]
     Dosage: 20 MG, QD
  6. MORPHINE [Concomitant]
     Dosage: 30 MG, QD
  7. PREDNISONE [Concomitant]
     Dosage: 3 MG, QD
  8. CALCIUM PLUS D3 [Concomitant]
     Dosage: UNK
     Dates: start: 201110, end: 201110
  9. ORENCIA [Concomitant]
     Dosage: UNK

REACTIONS (4)
  - Rash vesicular [Unknown]
  - Rash pruritic [Recovering/Resolving]
  - Furuncle [Recovered/Resolved]
  - Rash [Unknown]
